FAERS Safety Report 8349071-0 (Version None)
Quarter: 2012Q2

REPORT INFORMATION
  Report Type: 
  Country: None (occurrence: None)
  Receive Date: 20120510
  Receipt Date: 20120503
  Transmission Date: 20120825
  Serious: Yes (Hospitalization, Other)
  Sender: FDA-Public Use
  Company Number: US-BAYER-2011-039192

PATIENT
  Age: 26 Year
  Sex: Female
  Weight: 110 kg

DRUGS (21)
  1. DROSPIRENONE AND ETHINYL ESTRADIOL [Suspect]
  2. WELLBUTRIN [Concomitant]
     Dosage: UNK
     Dates: start: 20090501
  3. ANALGESICS [Concomitant]
     Dosage: UNK
     Dates: start: 20090512
  4. YAZ [Suspect]
     Indication: PREMENSTRUAL SYNDROME
  5. YAZ [Suspect]
     Indication: MENORRHAGIA
  6. YASMIN [Suspect]
     Indication: PREMENSTRUAL SYNDROME
  7. DROSPIRENONE AND ETHINYL ESTRADIOL [Suspect]
     Indication: CONTRACEPTION
     Dosage: UNK
     Dates: start: 20080801, end: 20090508
  8. NSAID'S [Concomitant]
     Indication: BACK PAIN
  9. YASMIN [Suspect]
  10. PREVACID [Concomitant]
     Indication: ABDOMINAL PAIN
     Dosage: 30 MG, QD
     Dates: start: 20090430, end: 20090508
  11. YAZ [Suspect]
     Indication: CONTRACEPTION
     Dosage: UNK
     Dates: start: 20080301, end: 20080801
  12. YAZ [Suspect]
  13. YASMIN [Suspect]
     Indication: MENORRHAGIA
  14. CLARITIN-D [Concomitant]
     Indication: MULTIPLE ALLERGIES
     Dosage: DAILY
  15. DROSPIRENONE AND ETHINYL ESTRADIOL [Suspect]
     Indication: PREMENSTRUAL SYNDROME
  16. YAZ [Suspect]
     Indication: ACNE
  17. YASMIN [Suspect]
     Indication: CONTRACEPTION
     Dosage: UNK
     Dates: start: 20060601, end: 20080301
  18. YASMIN [Suspect]
     Indication: ACNE
  19. DROSPIRENONE AND ETHINYL ESTRADIOL [Suspect]
     Indication: ACNE
  20. DROSPIRENONE AND ETHINYL ESTRADIOL [Suspect]
     Indication: MENORRHAGIA
  21. MULTI-VITAMINS [Concomitant]
     Dosage: 1 TAB DAILY

REACTIONS (20)
  - EMOTIONAL DISTRESS [None]
  - PULMONARY FIBROSIS [None]
  - CARDIAC DISORDER [None]
  - HYPOXIA [None]
  - FATIGUE [None]
  - HYPERTENSION [None]
  - PAIN [None]
  - HAEMOPTYSIS [None]
  - ELECTROCARDIOGRAM ST-T SEGMENT ABNORMAL [None]
  - ABORTION INDUCED [None]
  - FEAR [None]
  - PULMONARY INFARCTION [None]
  - ANXIETY [None]
  - DYSPNOEA [None]
  - HEART RATE INCREASED [None]
  - STRESS [None]
  - CHEST PAIN [None]
  - PULMONARY VALVE INCOMPETENCE [None]
  - ATRIAL THROMBOSIS [None]
  - PULMONARY EMBOLISM [None]
